FAERS Safety Report 4956891-9 (Version None)
Quarter: 2006Q1

REPORT INFORMATION
  Report Type: 
  Country: None (occurrence: None)
  Receive Date: 20060127
  Receipt Date: 20050627
  Transmission Date: 20060701
  Serious: Yes (Hospitalization)
  Sender: FDA-Public Use
  Company Number: 05-06-1124

PATIENT
  Age: 49 Year
  Sex: Female

DRUGS (3)
  1. CLOZAPINE [Suspect]
     Dosage: 150-250MG QD, ORAL
     Route: 048
     Dates: start: 20030801, end: 20050401
  2. GEODON [Concomitant]
  3. EFFEXOR [Concomitant]

REACTIONS (2)
  - DEPRESSION [None]
  - ELECTROCONVULSIVE THERAPY [None]
